FAERS Safety Report 26076287 (Version 1)
Quarter: 2025Q4

REPORT INFORMATION
  Report Type: Report from Study
  Country: CL (occurrence: CL)
  Receive Date: 20251121
  Receipt Date: 20251121
  Transmission Date: 20260118
  Serious: Yes (Hospitalization, Other)
  Sender: AMGEN
  Company Number: CL-AMGEN-CHLSL2025228696

PATIENT
  Sex: Male

DRUGS (2)
  1. VECTIBIX [Suspect]
     Active Substance: PANITUMUMAB
     Indication: Product used for unknown indication
     Dosage: 100 MILLIGRAM, 100 MG EN 5 ML X 1 INY X 1 ECO
     Route: 065
  2. VECTIBIX [Suspect]
     Active Substance: PANITUMUMAB
     Dosage: 100 MILLIGRAM, 100 MG EN 5 ML X 1 INY X 1 ECO, 80% REDUCTION
     Route: 065

REACTIONS (6)
  - Cholangitis [Unknown]
  - Hepatic neoplasm [Unknown]
  - Skin disorder [Unknown]
  - Limb injury [Unknown]
  - Metastases to diaphragm [Unknown]
  - Carcinoid tumour pulmonary [Unknown]

NARRATIVE: CASE EVENT DATE: 20250101
